FAERS Safety Report 9822052 (Version 1)
Quarter: 2014Q1

REPORT INFORMATION
  Report Type: Spontaneous
  Country: JP (occurrence: None)
  Receive Date: 20140115
  Receipt Date: 20140115
  Transmission Date: 20141002
  Serious: Yes (Other)
  Sender: FDA-Public Use
  Company Number: JP-ZYDUS-002462

PATIENT
  Sex: Female

DRUGS (1)
  1. LOSARTAN [Suspect]
     Indication: HYPERTENSION

REACTIONS (2)
  - Depressed level of consciousness [None]
  - Hyponatraemia [None]
